FAERS Safety Report 6354584-7 (Version None)
Quarter: 2009Q3

REPORT INFORMATION
  Report Type: 
  Country: None (occurrence: None)
  Receive Date: 20090914
  Receipt Date: 20090908
  Transmission Date: 20100115
  Serious: No
  Sender: FDA-Public Use
  Company Number: US-JNJFOC-20060800800

PATIENT
  Sex: Female
  Weight: 77.11 kg

DRUGS (1)
  1. DURAGESIC-100 [Suspect]
     Indication: PAIN
     Route: 062

REACTIONS (9)
  - DEVICE ADHESION ISSUE [None]
  - DIZZINESS [None]
  - INCOHERENT [None]
  - MALAISE [None]
  - NAUSEA [None]
  - THERAPEUTIC RESPONSE DECREASED [None]
  - TREMOR [None]
  - VOMITING [None]
  - WRONG TECHNIQUE IN DRUG USAGE PROCESS [None]
